FAERS Safety Report 9161420 (Version 4)
Quarter: 2014Q3

REPORT INFORMATION
  Report Type: Spontaneous
  Country: US (occurrence: US)
  Receive Date: 20130313
  Receipt Date: 20140818
  Transmission Date: 20150326
  Serious: Yes (Hospitalization, Other)
  Sender: FDA-Public Use
  Company Number: US-009507513-1303USA003165

PATIENT
  Sex: Female
  Weight: 72.56 kg

DRUGS (2)
  1. NUVARING [Suspect]
     Active Substance: ETHINYL ESTRADIOL\ETONOGESTREL
     Indication: CONTRACEPTION
     Dosage: IN 3 WEEKS, OUT 1 WEEK
     Route: 067
     Dates: start: 20090601, end: 20110603
  2. NUVARING [Suspect]
     Active Substance: ETHINYL ESTRADIOL\ETONOGESTREL
     Indication: MENSTRUATION IRREGULAR

REACTIONS (9)
  - Chest pain [Unknown]
  - Vulvovaginal candidiasis [Unknown]
  - Anxiety [Not Recovered/Not Resolved]
  - Face injury [Unknown]
  - Deep vein thrombosis [Unknown]
  - Herpes simplex [Unknown]
  - Off label use [Recovered/Resolved]
  - Thrombophlebitis superficial [Unknown]
  - Pulmonary embolism [Unknown]

NARRATIVE: CASE EVENT DATE: 20090601
